FAERS Safety Report 13896803 (Version 1)
Quarter: 2017Q3

REPORT INFORMATION
  Report Type: Spontaneous
  Country: US (occurrence: US)
  Receive Date: 20170822
  Receipt Date: 20170822
  Transmission Date: 20171127
  Serious: Yes (Disabling)
  Sender: FDA-Public Use
  Company Number: None

PATIENT
  Sex: Male
  Weight: 101.25 kg

DRUGS (4)
  1. COQ10 [Concomitant]
     Active Substance: UBIDECARENONE
  2. OMEGA FISH + FLAX [Concomitant]
  3. CLINDAMYCIN 300MG CAPSULES [Suspect]
     Active Substance: CLINDAMYCIN
     Indication: TOOTH INFECTION
     Dosage: ?          QUANTITY:1 CAPSULE(S);?
     Route: 048
     Dates: start: 20170714, end: 20170721
  4. MEN^S ONE MULTIVITAMIN [Concomitant]

REACTIONS (1)
  - Clostridium difficile infection [None]

NARRATIVE: CASE EVENT DATE: 20170802
